FAERS Safety Report 10082682 (Version 1)
Quarter: 2014Q2

REPORT INFORMATION
  Report Type: Spontaneous
  Country: ES (occurrence: ES)
  Receive Date: 20140416
  Receipt Date: 20140416
  Transmission Date: 20141212
  Serious: Yes (Hospitalization)
  Sender: FDA-Public Use
  Company Number: ES-B.I. PHARMACEUTICALS,INC./RIDGEFIELD-2014-BI-16913ES

PATIENT
  Sex: Female
  Weight: 70 kg

DRUGS (7)
  1. PRADAXA [Suspect]
     Indication: ARRHYTHMIA
     Dosage: 300 MG
     Route: 048
     Dates: end: 20140407
  2. PRADAXA [Suspect]
     Indication: ATRIAL FIBRILLATION
  3. AMLODIPINO [Concomitant]
     Indication: HYPERTENSION
     Dosage: 5 MG
     Route: 048
     Dates: end: 20140407
  4. EMCONCOR [Concomitant]
     Indication: ATRIAL FIBRILLATION
     Dosage: 10 MG
     Route: 048
     Dates: end: 20140407
  5. RAMIPRIL 10 [Concomitant]
     Indication: HYPERTENSION
     Dosage: 20 MG
     Route: 048
     Dates: end: 20140407
  6. DIGOXINA [Concomitant]
     Indication: ATRIAL FIBRILLATION
     Dosage: 0.25 MG
     Route: 048
     Dates: end: 20140407
  7. ATORVASTATINA [Concomitant]
     Indication: HYPERLIPIDAEMIA
     Dosage: 20 MG
     Route: 048

REACTIONS (3)
  - Brain stem microhaemorrhage [Not Recovered/Not Resolved]
  - Vertebral artery dissection [Not Recovered/Not Resolved]
  - Arterial thrombosis [Not Recovered/Not Resolved]
